FAERS Safety Report 8080581-X (Version None)
Quarter: 2012Q1

REPORT INFORMATION
  Report Type: 
  Country: None (occurrence: None)
  Receive Date: 20120130
  Receipt Date: 20120119
  Transmission Date: 20120608
  Serious: Yes (Hospitalization)
  Sender: FDA-Public Use
  Company Number: BE-ASTRAZENECA-2011SE70175

PATIENT
  Age: 23295 Day
  Sex: Male

DRUGS (8)
  1. ASPIRIN [Concomitant]
     Route: 048
     Dates: start: 20111214
  2. SIMVASTATIN [Concomitant]
     Indication: HYPERCHOLESTEROLAEMIA
     Dosage: STARTED } 1 MONTH PRIOR TO STUDY START
     Route: 048
     Dates: end: 20111107
  3. TILDIEM R [Concomitant]
     Indication: HYPERTENSION
     Dosage: STARTED } 1 MONTH PRIOR TO STUDY START
     Route: 048
     Dates: end: 20111107
  4. ASPIRIN [Concomitant]
     Route: 048
     Dates: end: 20111028
  5. PLAVIX [Suspect]
     Indication: CORONARY ARTERY DISEASE
     Route: 048
     Dates: start: 20110909, end: 20111102
  6. CLOPIDOGREL [Concomitant]
     Indication: ACUTE MYOCARDIAL INFARCTION
     Dosage: STARTED } 1 MONTH PRIOR TO STUDY START
     Route: 048
     Dates: end: 20110908
  7. LISINOPRIL [Concomitant]
     Route: 048
     Dates: start: 20111214
  8. LISINOPRIL [Concomitant]
     Indication: HYPERTENSION
     Dosage: STARTED } 1 MONTH PRIOR TO STUDY START
     Route: 048
     Dates: end: 20111107

REACTIONS (1)
  - URINARY BLADDER POLYP [None]
